FAERS Safety Report 9348385 (Version 1)
Quarter: 2013Q2

REPORT INFORMATION
  Report Type: Spontaneous
  Country: US (occurrence: None)
  Receive Date: 20130613
  Receipt Date: 20130613
  Transmission Date: 20140414
  Serious: Yes (Other)
  Sender: FDA-Public Use
  Company Number: None

PATIENT
  Age: 15 Year
  Sex: Male
  Weight: 44.91 kg

DRUGS (2)
  1. GAMMAGARD LIQUID [Suspect]
     Route: 042
     Dates: start: 20130607, end: 20130607
  2. GAMMAGARD LIQUID [Suspect]

REACTIONS (2)
  - Urticaria [None]
  - Pruritus [None]
